FAERS Safety Report 7444366-7 (Version None)
Quarter: 2011Q2

REPORT INFORMATION
  Report Type: 
  Country: None (occurrence: None)
  Receive Date: 20110429
  Receipt Date: 20110418
  Transmission Date: 20111010
  Serious: Yes (Hospitalization, Other)
  Sender: FDA-Public Use
  Company Number: US-JNJFOC-20110408376

PATIENT
  Sex: Female
  Weight: 74.39 kg

DRUGS (1)
  1. TOPAMAX [Suspect]
     Indication: CONVULSION
     Route: 048

REACTIONS (4)
  - CLOSTRIDIAL INFECTION [None]
  - HYSTERECTOMY [None]
  - WEIGHT DECREASED [None]
  - PRODUCT QUALITY ISSUE [None]
